FAERS Safety Report 12730827 (Version 2)
Quarter: 2016Q3

REPORT INFORMATION
  Report Type: Spontaneous
  Country: US (occurrence: US)
  Receive Date: 20160910
  Receipt Date: 20160922
  Transmission Date: 20161109
  Serious: Yes (Other)
  Sender: FDA-Public Use
  Company Number: US-AMGEN-USASP2016119379

PATIENT
  Age: 86 Year
  Sex: Female
  Weight: 68.27 kg

DRUGS (6)
  1. PROLIA [Suspect]
     Active Substance: DENOSUMAB
     Indication: OSTEOPOROSIS
     Dosage: 60 MG, UNK
     Route: 058
     Dates: start: 20160817
  2. TRAMADOL. [Concomitant]
     Active Substance: TRAMADOL
  3. DIOVAN [Concomitant]
     Active Substance: VALSARTAN
  4. NORVASC [Concomitant]
     Active Substance: AMLODIPINE BESYLATE
  5. HCTZ [Concomitant]
     Active Substance: HYDROCHLOROTHIAZIDE
  6. TENORMIN [Concomitant]
     Active Substance: ATENOLOL

REACTIONS (3)
  - Joint stiffness [Not Recovered/Not Resolved]
  - Parotid gland enlargement [Not Recovered/Not Resolved]
  - Facial paralysis [Not Recovered/Not Resolved]

NARRATIVE: CASE EVENT DATE: 20160818
